FAERS Safety Report 6315079-X (Version None)
Quarter: 2009Q3

REPORT INFORMATION
  Report Type: 
  Country: None (occurrence: None)
  Receive Date: 20090818
  Receipt Date: 20090818
  Transmission Date: 20100115
  Serious: Yes (Hospitalization)
  Sender: FDA-Public Use
  Company Number: None

PATIENT
  Age: 26 Year
  Sex: Female
  Weight: 56.246 kg

DRUGS (1)
  1. ULTRAM [Suspect]
     Indication: BACK PAIN
     Dosage: ONE BY MOUTH 2X DAY  EVERYDAY
     Route: 048
     Dates: start: 20090401, end: 20090817

REACTIONS (4)
  - CONVULSION [None]
  - DIZZINESS [None]
  - HEAD INJURY [None]
  - LOSS OF CONSCIOUSNESS [None]
